FAERS Safety Report 6744707-X (Version None)
Quarter: 2010Q2

REPORT INFORMATION
  Report Type: 
  Country: None (occurrence: None)
  Receive Date: 20100527
  Receipt Date: 20100520
  Transmission Date: 20101027
  Serious: Yes (Other)
  Sender: FDA-Public Use
  Company Number: CA-BAXTER-2010BH013900

PATIENT
  Age: 80 Year
  Sex: Male
  Weight: 70 kg

DRUGS (7)
  1. DEXTROSE [Suspect]
     Indication: MALABSORPTION
     Route: 065
     Dates: start: 20100501
  2. TRAVASOL 10% [Suspect]
     Indication: MALABSORPTION
     Route: 065
     Dates: start: 20100501
  3. SODIUM CHLORIDE 0.9% AND POTASSIUM CHLORIDE 0.075% [Suspect]
     Indication: MALABSORPTION
     Route: 065
     Dates: start: 20100501
  4. STERILE WATER FOR INJECTION IN PLASTIC CONTAINER [Suspect]
     Indication: MALABSORPTION
     Route: 065
     Dates: start: 20100501
  5. INTRALIPID 20% [Suspect]
     Indication: MALABSORPTION
     Route: 065
     Dates: start: 20100501
  6. VITAMIN K TAB [Suspect]
     Indication: MALABSORPTION
     Route: 065
     Dates: start: 20100501
  7. TPN ELECTROLYTES IN PLASTIC CONTAINER [Concomitant]
     Indication: MALABSORPTION
     Route: 065

REACTIONS (1)
  - ANAPHYLACTIC REACTION [None]
